FAERS Safety Report 7593167-8 (Version None)
Quarter: 2011Q3

REPORT INFORMATION
  Report Type: 
  Country: None (occurrence: None)
  Receive Date: 20110706
  Receipt Date: 20110630
  Transmission Date: 20111222
  Serious: Yes (Other)
  Sender: FDA-Public Use
  Company Number: US-JNJFOC-20100509002

PATIENT
  Sex: Female
  Weight: 99.79 kg

DRUGS (8)
  1. DURAGESIC-100 [Suspect]
     Indication: PAIN
     Route: 062
     Dates: start: 20100201
  2. SOMA [Concomitant]
     Indication: MYALGIA
     Route: 048
  3. DURAGESIC-100 [Suspect]
     Route: 062
  4. ROXICODONE [Concomitant]
     Indication: PAIN
     Route: 048
  5. DURAGESIC-100 [Suspect]
     Route: 062
     Dates: start: 20060101
  6. DURAGESIC-100 [Suspect]
     Indication: BACK PAIN
     Route: 062
  7. DURAGESIC-100 [Suspect]
     Route: 062
     Dates: start: 20100201
  8. DURAGESIC-100 [Suspect]
     Route: 062
     Dates: end: 20100201

REACTIONS (9)
  - PRODUCT ADHESION ISSUE [None]
  - LYME DISEASE [None]
  - BACK PAIN [None]
  - NERVE INJURY [None]
  - PRODUCT QUALITY ISSUE [None]
  - FEELING ABNORMAL [None]
  - HYPERTENSION [None]
  - HYPERHIDROSIS [None]
  - WRONG TECHNIQUE IN DRUG USAGE PROCESS [None]
